FAERS Safety Report 6005514-9 (Version None)
Quarter: 2008Q4

REPORT INFORMATION
  Report Type: 
  Country: None (occurrence: None)
  Receive Date: 20081216
  Receipt Date: 20081216
  Transmission Date: 20090506
  Serious: Yes (Hospitalization)
  Sender: FDA-Public Use
  Company Number: None

PATIENT
  Age: 42 Year
  Sex: Female
  Weight: 88.9 kg

DRUGS (2)
  1. HYDROXYCHLOROQUINE SULFATE [Suspect]
     Indication: JOINT SWELLING
     Dosage: 2 TABLETS DAILY PO
     Route: 048
     Dates: start: 20081101, end: 20081205
  2. HYDROXYCHLOROQUINE SULFATE [Suspect]
     Indication: SYNOVITIS
     Dosage: 2 TABLETS DAILY PO
     Route: 048
     Dates: start: 20081101, end: 20081205

REACTIONS (3)
  - ACUTE GENERALISED EXANTHEMATOUS PUSTULOSIS [None]
  - GENERALISED OEDEMA [None]
  - LEUKOCYTOSIS [None]
